FAERS Safety Report 12169844 (Version 3)
Quarter: 2016Q3

REPORT INFORMATION
  Report Type: Report from Study
  Country: BR (occurrence: BR)
  Receive Date: 20160310
  Receipt Date: 20160907
  Transmission Date: 20161109
  Serious: Yes (Other)
  Sender: FDA-Public Use
  Company Number: PHHY2016BR031260

PATIENT
  Sex: Male
  Weight: 68.7 kg

DRUGS (1)
  1. SANDOSTATIN LAR DEPOT [Suspect]
     Active Substance: OCTREOTIDE ACETATE
     Indication: NEUROENDOCRINE TUMOUR
     Dosage: 50 MG (20 MG + 30 MG), QMO
     Route: 030
     Dates: start: 2013

REACTIONS (6)
  - Bile duct obstruction [Unknown]
  - Pruritus [Unknown]
  - Fatigue [Unknown]
  - Hepatic haemorrhage [Unknown]
  - Cholecystitis [Unknown]
  - Yellow skin [Unknown]
